FAERS Safety Report 8294656-3 (Version None)
Quarter: 2012Q2

REPORT INFORMATION
  Report Type: 
  Country: None (occurrence: None)
  Receive Date: 20120418
  Receipt Date: 20120405
  Transmission Date: 20120825
  Serious: Yes (Hospitalization)
  Sender: FDA-Public Use
  Company Number: FR-JNJFOC-20120406453

PATIENT
  Sex: Female

DRUGS (9)
  1. LOVENOX [Concomitant]
     Route: 065
  2. LYRICA [Suspect]
     Indication: PRODUCT USED FOR UNKNOWN INDICATION
     Route: 048
  3. PERINDOPRIL ERBUMINE [Concomitant]
     Route: 065
  4. LYRICA [Suspect]
     Route: 048
     Dates: start: 20120117
  5. CRESTOR [Concomitant]
     Route: 065
  6. ACETAMINOPHEN AND TRAMADOL HCL [Suspect]
     Indication: PAIN
     Route: 048
     Dates: end: 20120223
  7. LYRICA [Suspect]
     Route: 048
     Dates: end: 20120223
  8. AMLODIPIN ARROW [Concomitant]
     Route: 065
  9. FORTEO [Concomitant]
     Route: 065
     Dates: start: 20120115

REACTIONS (3)
  - C-REACTIVE PROTEIN INCREASED [None]
  - PAIN [None]
  - CHOLESTASIS [None]
